FAERS Safety Report 7914064-1 (Version None)
Quarter: 2011Q4

REPORT INFORMATION
  Report Type: 
  Country: None (occurrence: None)
  Receive Date: 20111115
  Receipt Date: 20111108
  Transmission Date: 20120403
  Serious: Yes (Other)
  Sender: FDA-Public Use
  Company Number: TR-ASTELLAS-2011EU007976

PATIENT
  Age: 42 Year
  Sex: Male

DRUGS (9)
  1. RANITIDINE HCL [Concomitant]
     Dosage: 300 MG, UNKNOWN/D
     Route: 065
  2. HYDROCHLOROTHIAZIDE [Concomitant]
     Dosage: 12.5 MG, UNKNOWN/D
     Route: 065
  3. MYCOPHENOLATE MOFETIL [Suspect]
     Indication: RENAL TRANSPLANT
     Dosage: 1500 MG, UNKNOWN/D
     Route: 065
  4. ALLOPURINOL [Concomitant]
     Dosage: 300 MG, UNKNOWN/D
     Route: 065
  5. CANDESARTAN CILEXETIL [Concomitant]
     Dosage: 16 MG, UNKNOWN/D
     Route: 065
  6. PREDNISOLONE [Suspect]
     Indication: RENAL TRANSPLANT
     Dosage: 5 MG, UNKNOWN/D
     Route: 065
  7. VERAPAMIL [Concomitant]
     Dosage: 240 MG, UNKNOWN/D
     Route: 065
  8. ACARBOSE [Concomitant]
     Dosage: 150 MG, UNKNOWN/D
     Route: 065
  9. TACROLIMUS [Suspect]
     Indication: RENAL TRANSPLANT
     Dosage: 2 G, UNKNOWN/D
     Route: 065

REACTIONS (1)
  - PYODERMA GANGRENOSUM [None]
